FAERS Safety Report 4586993-0 (Version None)
Quarter: 2005Q1

REPORT INFORMATION
  Report Type: 
  Country: None (occurrence: None)
  Receive Date: 20050218
  Receipt Date: 20050210
  Transmission Date: 20050727
  Serious: Yes (Other)
  Sender: FDA-Public Use
  Company Number: US-MERCK-0502USA01729

PATIENT
  Age: 55 Year
  Sex: Male

DRUGS (7)
  1. ELSPAR [Suspect]
     Indication: B-CELL TYPE ACUTE LEUKAEMIA
     Route: 065
  2. PREDNISONE [Concomitant]
     Indication: B-CELL TYPE ACUTE LEUKAEMIA
     Route: 065
  3. FLUDARABINE PHOSPHATE [Concomitant]
     Indication: B-CELL TYPE ACUTE LEUKAEMIA
     Route: 065
  4. VP-16 [Concomitant]
     Indication: B-CELL TYPE ACUTE LEUKAEMIA
     Route: 065
  5. MITOXANTRONE HYDROCHLORIDE [Concomitant]
     Indication: B-CELL TYPE ACUTE LEUKAEMIA
     Route: 065
  6. VINCRISTINE SULFATE [Concomitant]
     Indication: B-CELL TYPE ACUTE LEUKAEMIA
     Route: 065
  7. CYTARABINE [Concomitant]
     Indication: B-CELL TYPE ACUTE LEUKAEMIA
     Route: 065

REACTIONS (9)
  - ACTIVATED PARTIAL THROMBOPLASTIN TIME PROLONGED [None]
  - ANTITHROMBIN III DECREASED [None]
  - BLOOD FIBRINOGEN INCREASED [None]
  - FACTOR XI DEFICIENCY [None]
  - FACTOR XII DEFICIENCY [None]
  - PLATELET COUNT DECREASED [None]
  - PROTEIN C DECREASED [None]
  - PROTEIN S DECREASED [None]
  - THROMBOSIS [None]
